FAERS Safety Report 6021965-0 (Version None)
Quarter: 2008Q4

REPORT INFORMATION
  Report Type: 
  Country: None (occurrence: None)
  Receive Date: 20081223
  Receipt Date: 20081210
  Transmission Date: 20090506
  Serious: Yes (Other)
  Sender: FDA-Public Use
  Company Number: 2008003224

PATIENT
  Sex: Female

DRUGS (2)
  1. ERLOTINIB (ERLOTINIB) (TABLET) (ERLOTINIB) [Suspect]
     Indication: GALLBLADDER CANCER
     Dosage: 150 MG, QD, ORAL; 50 MG, QD
     Route: 048
     Dates: start: 20071214
  2. BEVACIZUMAB (INJECTION FOR INFUSION) [Suspect]
     Dosage: 5 MG/KG, DAYS 1-28, INTRAVENOUS
     Route: 042
     Dates: start: 20071214

REACTIONS (2)
  - HYPONATRAEMIA [None]
  - WEIGHT DECREASED [None]
